FAERS Safety Report 25022456 (Version 3)
Quarter: 2025Q1

REPORT INFORMATION
  Report Type: Spontaneous
  Country: TR (occurrence: TR)
  Receive Date: 20250228
  Receipt Date: 20250317
  Transmission Date: 20250409
  Serious: Yes (Life-Threatening, Hospitalization)
  Sender: ROCHE
  Company Number: TR-002147023-NVSC2025TR030150

PATIENT
  Age: 75 Year
  Sex: Male

DRUGS (2)
  1. LUCENTIS [Suspect]
     Active Substance: RANIBIZUMAB
     Indication: Diabetic retinopathy
     Dosage: UNK, QMO
     Route: 065
  2. LUCENTIS [Suspect]
     Active Substance: RANIBIZUMAB
     Dosage: UNK, QMO
     Route: 065

REACTIONS (16)
  - Loss of consciousness [Unknown]
  - Staring [Unknown]
  - Memory impairment [Unknown]
  - Eye disorder [Unknown]
  - Injection site reaction [Unknown]
  - Gait disturbance [Unknown]
  - Confusional state [Unknown]
  - Ocular hyperaemia [Unknown]
  - Eye haemorrhage [Unknown]
  - Somnolence [Unknown]
  - Eye oedema [Unknown]
  - Suspected counterfeit product [Unknown]
  - Hypersensitivity [Unknown]
  - Expired product administered [Unknown]
  - Apparent death [Unknown]
  - Feeling abnormal [Unknown]
